FAERS Safety Report 13486185 (Version 1)
Quarter: 2017Q2

REPORT INFORMATION
  Report Type: Spontaneous
  Country: US (occurrence: US)
  Receive Date: 20170426
  Receipt Date: 20170426
  Transmission Date: 20170830
  Serious: Yes (Other)
  Sender: FDA-Public Use
  Company Number: None

PATIENT
  Age: 59 Year
  Sex: Female
  Weight: 70.65 kg

DRUGS (7)
  1. VITAMIN C [Concomitant]
     Active Substance: ASCORBIC ACID
  2. FISH OIL [Concomitant]
     Active Substance: FISH OIL
  3. LEVOFLOXACIN. [Suspect]
     Active Substance: LEVOFLOXACIN
     Indication: APPENDICECTOMY
     Dosage: ?          QUANTITY:1 TABLET(S);  DAILY ORAL?
     Route: 048
     Dates: start: 20160421, end: 20160426
  4. MORPHINE [Concomitant]
     Active Substance: MORPHINE
  5. MULTI VITAMIN [Concomitant]
     Active Substance: VITAMINS
  6. PROBIOTIC [Concomitant]
     Active Substance: PROBIOTICS NOS
  7. BLOOD PRESSURE MEDS [Concomitant]

REACTIONS (2)
  - Coeliac disease [None]
  - Condition aggravated [None]

NARRATIVE: CASE EVENT DATE: 20160606
